FAERS Safety Report 7985149-9 (Version None)
Quarter: 2011Q4

REPORT INFORMATION
  Report Type: 
  Country: None (occurrence: None)
  Receive Date: 20111216
  Receipt Date: 20111212
  Transmission Date: 20120403
  Serious: Yes (Death, Hospitalization, Other)
  Sender: FDA-Public Use
  Company Number: PHHY2011FR099306

PATIENT
  Sex: Male
  Weight: 95 kg

DRUGS (4)
  1. EVEROLIMUS [Suspect]
     Indication: RENAL CANCER METASTATIC
     Dosage: 10 MG, DAILY
     Dates: start: 20111017, end: 20111107
  2. NICARDIPINE HCL [Concomitant]
     Indication: HYPERTENSION
     Dosage: 50 MG, BID
  3. LASIX [Concomitant]
     Indication: OEDEMA
     Dosage: 20 MG, BID
     Dates: start: 20110701
  4. HYZAAR [Concomitant]
     Indication: HYPERTENSION
     Dosage: 1 DF, (12.5/50MG) DAILY
     Dates: start: 20100701

REACTIONS (4)
  - CONVULSION [None]
  - THROMBOCYTOPENIA [None]
  - RESPIRATORY DISORDER [None]
  - OXYGEN SATURATION DECREASED [None]
